FAERS Safety Report 5515684-4 (Version None)
Quarter: 2007Q4

REPORT INFORMATION
  Report Type: 
  Country: None (occurrence: None)
  Receive Date: 20071113
  Receipt Date: 20070822
  Transmission Date: 20080405
  Serious: No
  Sender: FDA-Public Use
  Company Number: A0674737A

PATIENT
  Age: 68 Year
  Sex: Female

DRUGS (6)
  1. COREG [Suspect]
     Dosage: 40MG PER DAY
     Route: 048
  2. CLINORIL [Concomitant]
  3. FUROSEMIDE [Concomitant]
  4. SPIRONOLACTONE [Concomitant]
  5. METFORMIN HCL [Concomitant]
  6. ACIPHEX [Concomitant]

REACTIONS (3)
  - BURNING SENSATION [None]
  - PRURITUS [None]
  - RASH [None]
